FAERS Safety Report 20889062 (Version 2)
Quarter: 2022Q3

REPORT INFORMATION
  Report Type: Spontaneous
  Country: IT (occurrence: IT)
  Receive Date: 20220530
  Receipt Date: 20220730
  Transmission Date: 20221027
  Serious: Yes (Hospitalization, Other)
  Sender: FDA-Public Use
  Company Number: IT-MINISAL02-867594

PATIENT
  Age: 22 Year
  Sex: Female

DRUGS (6)
  1. GABAPENTIN [Suspect]
     Active Substance: GABAPENTIN
     Indication: Product used for unknown indication
     Dosage: 1700 MILLIGRAM, TOTAL
     Route: 048
     Dates: start: 20210924, end: 20210924
  2. QUETIAPINE [Suspect]
     Active Substance: QUETIAPINE
     Indication: Product used for unknown indication
     Dosage: 250 MILLIGRAM, TOTAL
     Route: 048
     Dates: start: 20210924, end: 20210924
  3. ATARAX [Suspect]
     Active Substance: HYDROXYZINE HYDROCHLORIDE
     Indication: Product used for unknown indication
     Dosage: 8 DOSAGE FORM, TOTAL
     Route: 048
     Dates: start: 20210924, end: 20210924
  4. PAROXETINE HYDROCHLORIDE [Suspect]
     Active Substance: PAROXETINE HYDROCHLORIDE
     Indication: Product used for unknown indication
     Dosage: 12 DOSAGE FORM, TOTAL
     Route: 048
     Dates: start: 20210924, end: 20210924
  5. TRAZODONE HYDROCHLORIDE [Suspect]
     Active Substance: TRAZODONE HYDROCHLORIDE
     Indication: Product used for unknown indication
     Dosage: 10 DOSAGE FORM, TOTAL
     Route: 048
     Dates: start: 20210924, end: 20210924
  6. LYRICA [Suspect]
     Active Substance: PREGABALIN
     Indication: Product used for unknown indication
     Dosage: 250 MILLIGRAM, TOTAL
     Route: 048
     Dates: start: 20210924, end: 20210924

REACTIONS (4)
  - Suicide attempt [Unknown]
  - Bradyphrenia [Unknown]
  - Sopor [Unknown]
  - Drug abuse [Recovered/Resolved]

NARRATIVE: CASE EVENT DATE: 20210924
